FAERS Safety Report 5136902-0 (Version None)
Quarter: 2006Q4

REPORT INFORMATION
  Report Type: 
  Country: None (occurrence: None)
  Receive Date: 20061023
  Receipt Date: 20061010
  Transmission Date: 20070319
  Serious: Yes (Hospitalization, Disabling, Other)
  Sender: FDA-Public Use
  Company Number: 2006125994

PATIENT
  Sex: Female

DRUGS (1)
  1. NEURONTIN [Suspect]
     Indication: NEUROPATHY
     Dosage: 600 MG (600 MG, 1 IN 1 D), ORAL
     Route: 048
     Dates: start: 20060401

REACTIONS (3)
  - ABASIA [None]
  - FALL [None]
  - FEMUR FRACTURE [None]
